FAERS Safety Report 7879697-X (Version None)
Quarter: 2011Q4

REPORT INFORMATION
  Report Type: 
  Country: None (occurrence: None)
  Receive Date: 20111101
  Receipt Date: 20110929
  Transmission Date: 20120403
  Serious: No
  Sender: FDA-Public Use
  Company Number: US-ABBOTT-11P-163-0860253-00

PATIENT
  Sex: Female

DRUGS (3)
  1. LEVOTHYROXINE SODIUM [Concomitant]
     Indication: HYPOTHYROIDISM
  2. DRONEDARONE HCL [Interacting]
     Indication: ATRIAL FIBRILLATION
     Dates: start: 20100101
  3. BIAXIN [Suspect]
     Indication: RESPIRATORY TRACT INFECTION
     Dates: start: 20110808, end: 20110810

REACTIONS (4)
  - DIZZINESS [None]
  - DRUG INTERACTION [None]
  - MALAISE [None]
  - PRESYNCOPE [None]
